FAERS Safety Report 20022375 (Version 2)
Quarter: 2022Q2

REPORT INFORMATION
  Report Type: Spontaneous
  Country: JP (occurrence: JP)
  Receive Date: 20211102
  Receipt Date: 20220421
  Transmission Date: 20220721
  Serious: Yes (Other)
  Sender: FDA-Public Use
  Company Number: JP-Clinigen Group PLC/ Clinigen Healthcare Ltd-JP-CLGN-21-00533

PATIENT
  Sex: Male

DRUGS (4)
  1. DEXRAZOXANE [Suspect]
     Active Substance: DEXRAZOXANE
     Indication: Chemotherapy cardiotoxicity attenuation
     Dates: start: 20210921, end: 20210922
  2. DEXRAZOXANE [Suspect]
     Active Substance: DEXRAZOXANE
     Dates: start: 20211103
  3. DEXRAZOXANE [Suspect]
     Active Substance: DEXRAZOXANE
     Dates: start: 20211215
  4. DEXRAZOXANE [Suspect]
     Active Substance: DEXRAZOXANE
     Dates: start: 20220126

REACTIONS (1)
  - Off label use [Unknown]
